FAERS Safety Report 5200236-6 (Version None)
Quarter: 2007Q1

REPORT INFORMATION
  Report Type: 
  Country: None (occurrence: None)
  Receive Date: 20070105
  Receipt Date: 20061227
  Transmission Date: 20070707
  Serious: Yes (Hospitalization)
  Sender: FDA-Public Use
  Company Number: JP-PFIZER INC-2006082164

PATIENT
  Sex: Male
  Weight: 52 kg

DRUGS (21)
  1. SU-011,248 [Suspect]
     Indication: RENAL CELL CARCINOMA STAGE UNSPECIFIED
     Route: 048
     Dates: start: 20060405, end: 20060413
  2. SU-011,248 [Suspect]
     Route: 048
     Dates: start: 20060425, end: 20060613
  3. FENTANYL TRANSDERMAL SYSTEM [Concomitant]
     Route: 061
     Dates: start: 20060416
  4. SODIUM PICOSULFATE [Concomitant]
     Route: 048
     Dates: start: 20060417, end: 20060718
  5. TRIAMCINOLONE ACETONIDE [Concomitant]
     Route: 061
     Dates: start: 20060417, end: 20060530
  6. FERROUS CITRATE [Concomitant]
     Dates: start: 20060509
  7. BROTIZOLAM [Concomitant]
     Route: 048
     Dates: start: 20060510, end: 20060718
  8. DEXAMETHASONE [Concomitant]
     Dates: start: 20060503
  9. POVIDONE IODINE [Concomitant]
     Route: 048
     Dates: start: 20060419, end: 20060718
  10. LANOCONAZOLE [Concomitant]
     Dates: start: 20051212
  11. REBAMIPIDE [Concomitant]
     Route: 048
     Dates: start: 20060427, end: 20060718
  12. LOXOPROFEN SODIUM [Concomitant]
     Route: 048
     Dates: start: 20060427
  13. IOPAMIDOL [Concomitant]
     Dates: start: 20060613, end: 20060613
  14. FLURBIPROFEN AXETIL [Concomitant]
     Route: 042
     Dates: start: 20060412, end: 20060422
  15. FAMOTIDINE [Concomitant]
     Route: 042
     Dates: start: 20060417, end: 20060421
  16. ADELAVIN [Concomitant]
     Route: 042
     Dates: start: 20060417, end: 20060422
  17. ENSURE [Concomitant]
     Route: 048
     Dates: start: 20060329, end: 20060515
  18. ZOLPIDEM TARTRATE [Concomitant]
     Route: 048
     Dates: start: 20060427, end: 20060509
  19. MAGNESIUM OXIDE [Concomitant]
     Route: 048
     Dates: end: 20060718
  20. RINGERSTERIL [Concomitant]
     Route: 042
  21. PROHEPARUM [Concomitant]
     Route: 048
     Dates: start: 20060427, end: 20060718

REACTIONS (14)
  - ANAEMIA [None]
  - ANOREXIA [None]
  - BLOOD PRESSURE DECREASED [None]
  - CHEYNE-STOKES RESPIRATION [None]
  - DISORIENTATION [None]
  - GENERAL PHYSICAL HEALTH DETERIORATION [None]
  - HALLUCINATION, VISUAL [None]
  - HYPERCALCAEMIA [None]
  - MALAISE [None]
  - MALIGNANT NEOPLASM PROGRESSION [None]
  - METASTASES TO BONE [None]
  - NAUSEA [None]
  - PYREXIA [None]
  - SOMNOLENCE [None]
